FAERS Safety Report 10186032 (Version 2)
Quarter: 2014Q2

REPORT INFORMATION
  Report Type: Spontaneous
  Country: PA (occurrence: PA)
  Receive Date: 20140521
  Receipt Date: 20140523
  Transmission Date: 20141212
  Serious: Yes (Death, Hospitalization)
  Sender: FDA-Public Use
  Company Number: PA-SA-2014SA063055

PATIENT
  Age: 51 Year
  Sex: Male

DRUGS (1)
  1. THYMOGLOBULINE [Suspect]
     Indication: BONE MARROW FAILURE
     Route: 042
     Dates: start: 20140503

REACTIONS (3)
  - Cytokine release syndrome [Fatal]
  - Cytokine storm [Fatal]
  - Off label use [Unknown]
